FAERS Safety Report 26191090 (Version 1)
Quarter: 2025Q4

REPORT INFORMATION
  Report Type: Spontaneous
  Country: US (occurrence: US)
  Receive Date: 20251223
  Receipt Date: 20251223
  Transmission Date: 20260118
  Serious: Yes (Life-Threatening, Hospitalization)
  Sender: MYLAN
  Company Number: US-MYLANLABS-2025M1108800

PATIENT
  Age: 42 Year
  Sex: Male

DRUGS (1)
  1. EPOPROSTENOL [Suspect]
     Active Substance: EPOPROSTENOL
     Indication: Respiratory failure
     Dosage: UNK, RESPIRATORY INHALATION

REACTIONS (2)
  - Drug ineffective for unapproved indication [Unknown]
  - Product prescribing issue [Unknown]
